FAERS Safety Report 20898314 (Version 3)
Quarter: 2022Q4

REPORT INFORMATION
  Report Type: Spontaneous
  Country: US (occurrence: US)
  Receive Date: 20220531
  Receipt Date: 20221018
  Transmission Date: 20230113
  Serious: Yes (Disabling)
  Sender: FDA-Public Use
  Company Number: US-SA-SAC20220527001384

PATIENT
  Age: 75 Year
  Sex: Female

DRUGS (1)
  1. AUBAGIO [Suspect]
     Active Substance: TERIFLUNOMIDE
     Indication: Multiple sclerosis
     Dosage: 14 MG, QD
     Route: 048
     Dates: start: 20220406

REACTIONS (11)
  - Walking aid user [Unknown]
  - Urinary incontinence [Unknown]
  - Mobility decreased [Unknown]
  - Fatigue [Unknown]
  - Fall [Unknown]
  - Depression [Unknown]
  - Cognitive disorder [Unknown]
  - Hyperhidrosis [Unknown]
  - Movement disorder [Unknown]
  - Abdominal discomfort [Unknown]
  - Diarrhoea [Unknown]
